FAERS Safety Report 13338521 (Version 5)
Quarter: 2020Q1

REPORT INFORMATION
  Report Type: Report from Study
  Country: US (occurrence: US)
  Receive Date: 20170315
  Receipt Date: 20200109
  Transmission Date: 20200409
  Serious: Yes (Hospitalization, Other)
  Sender: FDA-Public Use
  Company Number: US-SA-2017SA042093

PATIENT
  Age: 59 Year
  Sex: Female

DRUGS (1)
  1. AGALSIDASE BETA [Suspect]
     Active Substance: AGALSIDASE BETA
     Indication: FABRY^S DISEASE
     Dosage: 75.00,  QOW
     Route: 041
     Dates: start: 20040728

REACTIONS (13)
  - Procedural complication [Unknown]
  - Neck pain [Not Recovered/Not Resolved]
  - Insomnia [Not Recovered/Not Resolved]
  - Myocardial necrosis marker increased [Unknown]
  - End stage renal disease [Unknown]
  - Headache [Recovered/Resolved]
  - Head discomfort [Unknown]
  - Incorrect drug administration rate [Recovering/Resolving]
  - Nausea [Recovering/Resolving]
  - Product use issue [Recovering/Resolving]
  - Chest pain [Not Recovered/Not Resolved]
  - Muscle atrophy [Unknown]
  - Kidney transplant rejection [Unknown]

NARRATIVE: CASE EVENT DATE: 2017
